FAERS Safety Report 25712294 (Version 1)
Quarter: 2025Q3

REPORT INFORMATION
  Report Type: Spontaneous
  Country: GB (occurrence: None)
  Receive Date: 20250821
  Receipt Date: 20250821
  Transmission Date: 20251020
  Serious: Yes (Other)
  Sender: Harrow Health
  Company Number: NVSC2025GB126426

PATIENT
  Age: 56 Year
  Sex: Female

DRUGS (4)
  1. NEVANAC [Suspect]
     Active Substance: NEPAFENAC
     Indication: Macular oedema
  2. NEVANAC [Suspect]
     Active Substance: NEPAFENAC
     Indication: Eye pain
  3. Sodium chloride Eye drops [Concomitant]
  4. HUMIRA [Concomitant]
     Active Substance: ADALIMUMAB

REACTIONS (3)
  - Glaucoma [Unknown]
  - Bullous keratopathy [Unknown]
  - Corneal oedema [Unknown]
